FAERS Safety Report 17153648 (Version 2)
Quarter: 2019Q4

REPORT INFORMATION
  Report Type: Spontaneous
  Country: US (occurrence: US)
  Receive Date: 20191213
  Receipt Date: 20191219
  Transmission Date: 20200122
  Serious: No
  Sender: FDA-Public Use
  Company Number: US-009507513-1912USA005914

PATIENT
  Sex: Female

DRUGS (12)
  1. FOLLISTIM AQ [Suspect]
     Active Substance: FOLLITROPIN
  2. LEUPROLIDE [Concomitant]
     Active Substance: LEUPROLIDE
  3. ESTRADIOL. [Concomitant]
     Active Substance: ESTRADIOL
  4. DOXYCYCLINE. [Concomitant]
     Active Substance: DOXYCYCLINE
  5. GANIRELIX ACETATE. [Concomitant]
     Active Substance: GANIRELIX ACETATE
  6. CLOMIPHENE CITRATE. [Concomitant]
     Active Substance: CLOMIPHENE CITRATE
  7. FOLLISTIM AQ [Suspect]
     Active Substance: FOLLITROPIN
     Indication: INFERTILITY FEMALE
     Dosage: 225 UNITS, QD; CONCENTRATION: 900 IU/0.18 ML
     Route: 058
     Dates: start: 20190813
  8. MENOPUR [Concomitant]
     Active Substance: FOLLITROPIN\LUTEINIZING HORMONE
  9. GONADOTROPIN, CHORIONIC [Concomitant]
     Active Substance: CHORIOGONADOTROPIN ALFA
  10. CABERGOLINE. [Concomitant]
     Active Substance: CABERGOLINE
  11. LETROZOLE. [Concomitant]
     Active Substance: LETROZOLE
  12. PROGESTERONE. [Concomitant]
     Active Substance: PROGESTERONE

REACTIONS (1)
  - Adverse food reaction [Unknown]

NARRATIVE: CASE EVENT DATE: 2019
